FAERS Safety Report 5458185-4 (Version None)
Quarter: 2007Q3

REPORT INFORMATION
  Report Type: 
  Country: None (occurrence: None)
  Receive Date: 20070917
  Receipt Date: 20070909
  Transmission Date: 20080115
  Serious: Yes (Death, Life-Threatening, Disabling, Other)
  Sender: FDA-Public Use
  Company Number: 200709AGG00718

PATIENT
  Age: 75 Year
  Sex: Female

DRUGS (5)
  1. AGGRASTAT [Suspect]
     Indication: ANGINA UNSTABLE
     Dosage: INTRAVENOUS (NOT OTHERWISE SPECIFIED))
     Route: 042
     Dates: start: 20070909, end: 20070909
  2. AGGRASTAT [Suspect]
     Indication: MYOCARDIAL INFARCTION
     Dosage: INTRAVENOUS (NOT OTHERWISE SPECIFIED))
     Route: 042
     Dates: start: 20070909, end: 20070909
  3. PLAVIX [Concomitant]
  4. HEPARIN [Concomitant]
  5. ASPIRIN [Concomitant]

REACTIONS (4)
  - ANGINA UNSTABLE [None]
  - CARDIAC ARREST [None]
  - CORONARY ARTERY DISSECTION [None]
  - MYOCARDIAL INFARCTION [None]
